FAERS Safety Report 7788106-0 (Version None)
Quarter: 2011Q3

REPORT INFORMATION
  Report Type: 
  Country: None (occurrence: None)
  Receive Date: 20110927
  Receipt Date: 20110914
  Transmission Date: 20111222
  Serious: Yes (Other)
  Sender: FDA-Public Use
  Company Number: AUR-APL-2011-05068

PATIENT
  Age: 31 Year
  Sex: Male

DRUGS (1)
  1. FLUOXETINE [Suspect]
     Indication: MYASTHENIC SYNDROME
     Dosage: (20 MG, 1 D), (40 MG, 1 D)

REACTIONS (1)
  - DRUG INTOLERANCE [None]
